FAERS Safety Report 19415871 (Version 2)
Quarter: 2021Q2

REPORT INFORMATION
  Report Type: Spontaneous
  Country: US (occurrence: US)
  Receive Date: 20210615
  Receipt Date: 20210616
  Transmission Date: 20210717
  Serious: Yes (Hospitalization, Other)
  Sender: FDA-Public Use
  Company Number: US-RECORDATI RARE DISEASE INC.-2021002109

PATIENT
  Sex: Male

DRUGS (1)
  1. PANHEMATIN [Suspect]
     Active Substance: HEMIN
     Indication: PORPHYRIA ACUTE
     Dosage: INFUSION, TWICE A WEEK
     Route: 042
     Dates: start: 202104

REACTIONS (7)
  - Pain [Unknown]
  - Exposure via skin contact [Unknown]
  - Device related infection [Unknown]
  - Porphyria acute [Unknown]
  - Drug ineffective for unapproved indication [Unknown]
  - Medication error [Unknown]
  - Off label use [None]
